FAERS Safety Report 5378618-1 (Version None)
Quarter: 2007Q3

REPORT INFORMATION
  Report Type: 
  Country: None (occurrence: None)
  Receive Date: 20070705
  Receipt Date: 20070625
  Transmission Date: 20080115
  Serious: Yes (Hospitalization, Other)
  Sender: FDA-Public Use
  Company Number: US-ROCHE-358644

PATIENT
  Age: 20 Year
  Sex: Female
  Weight: 60.3 kg

DRUGS (3)
  1. ACCUTANE [Suspect]
     Route: 048
     Dates: start: 20001201, end: 20010501
  2. CLARITIN [Concomitant]
     Route: 048
  3. ORTHO TRI-CYCLEN [Concomitant]
     Route: 048

REACTIONS (42)
  - ABDOMINAL DISTENSION [None]
  - ACNE [None]
  - ALOPECIA [None]
  - ANXIETY [None]
  - ARRHYTHMIA [None]
  - ASTHENIA [None]
  - ATRIAL FIBRILLATION [None]
  - BACK PAIN [None]
  - CHEST PAIN [None]
  - DEAFNESS [None]
  - DEPRESSION [None]
  - DERMATITIS CONTACT [None]
  - DIZZINESS [None]
  - DRY MOUTH [None]
  - DRY SKIN [None]
  - DYSPNOEA [None]
  - EPISTAXIS [None]
  - ERYTHEMA [None]
  - EXTRASYSTOLES [None]
  - FATIGUE [None]
  - FLUSHING [None]
  - GASTROENTERITIS [None]
  - GASTROINTESTINAL INJURY [None]
  - HAEMATURIA [None]
  - HYPERHIDROSIS [None]
  - HYPOAESTHESIA [None]
  - INSOMNIA [None]
  - IRRITABLE BOWEL SYNDROME [None]
  - LIGAMENT SPRAIN [None]
  - LIP DRY [None]
  - LYMPHADENOPATHY [None]
  - MYOFASCITIS [None]
  - NASAL CONGESTION [None]
  - NECK PAIN [None]
  - NORMOCHROMIC NORMOCYTIC ANAEMIA [None]
  - PALPITATIONS [None]
  - SINUS BRADYCARDIA [None]
  - SINUS TACHYCARDIA [None]
  - SKIN REACTION [None]
  - SYMPATHETIC POSTERIOR CERVICAL SYNDROME [None]
  - SYNCOPE [None]
  - VENTRICULAR EXTRASYSTOLES [None]
